FAERS Safety Report 15339730 (Version 1)
Quarter: 2018Q3

REPORT INFORMATION
  Report Type: Spontaneous
  Country: US (occurrence: US)
  Receive Date: 20180831
  Receipt Date: 20180831
  Transmission Date: 20181010
  Serious: Yes (Hospitalization, Other)
  Sender: FDA-Public Use
  Company Number: US-SHIRE-US201832752

PATIENT

DRUGS (1)
  1. VPRIV [Suspect]
     Active Substance: VELAGLUCERASE ALFA
     Indication: GAUCHER^S DISEASE TYPE I
     Dosage: UNK, VIAL 1X/2WKS
     Route: 042
     Dates: start: 20110510

REACTIONS (3)
  - Swelling [Recovering/Resolving]
  - Cardiac failure congestive [Not Recovered/Not Resolved]
  - Inappropriate schedule of drug administration [Unknown]
